FAERS Safety Report 5897018-9 (Version None)
Quarter: 2008Q3

REPORT INFORMATION
  Report Type: 
  Country: None (occurrence: None)
  Receive Date: 20080924
  Receipt Date: 20080319
  Transmission Date: 20090109
  Serious: Yes (Other)
  Sender: FDA-Public Use
  Company Number: US-ASTRAZENECA-2008UW05535

PATIENT
  Age: 58 Year
  Sex: Male
  Weight: 126.6 kg

DRUGS (10)
  1. SEROQUEL [Suspect]
     Indication: BIPOLAR DISORDER
     Route: 048
     Dates: start: 20080128
  2. SEROQUEL [Suspect]
     Route: 048
     Dates: start: 20080201
  3. MIRALAX [Concomitant]
  4. PEPCID [Concomitant]
  5. CYMBALTA [Concomitant]
  6. METHADONE HCL [Concomitant]
  7. OXYCODONE HCL [Concomitant]
  8. BENICAR [Concomitant]
  9. VERAPAMIL [Concomitant]
  10. SYNTHROID [Concomitant]

REACTIONS (3)
  - DYSKINESIA [None]
  - MUSCLE TWITCHING [None]
  - MYOCLONUS [None]
